FAERS Safety Report 6328238-7 (Version None)
Quarter: 2009Q3

REPORT INFORMATION
  Report Type: 
  Country: None (occurrence: None)
  Receive Date: 20090825
  Receipt Date: 20090202
  Transmission Date: 20100115
  Serious: No
  Sender: FDA-Public Use
  Company Number: US-ABBOTT-09P-163-0501151-00

PATIENT
  Sex: Female
  Weight: 49.94 kg

DRUGS (4)
  1. SYNTHROID [Suspect]
     Indication: HYPOTHYROIDISM
     Route: 048
     Dates: end: 20090101
  2. SYNTHROID [Suspect]
     Route: 048
     Dates: start: 20090101, end: 20090201
  3. SYNTHROID [Suspect]
     Dates: start: 20070101
  4. SYNTHROID [Suspect]
     Route: 048
     Dates: start: 20090202

REACTIONS (1)
  - PRURITUS [None]
